FAERS Safety Report 9836845 (Version 3)
Quarter: 2014Q1

REPORT INFORMATION
  Report Type: Spontaneous
  Country: US (occurrence: US)
  Receive Date: 20140123
  Receipt Date: 20140210
  Transmission Date: 20141002
  Serious: Yes (Other)
  Sender: FDA-Public Use
  Company Number: US-PFIZER INC-2014015173

PATIENT
  Age: 32 Year
  Sex: Female
  Weight: 85.7 kg

DRUGS (5)
  1. CELLCEPT [Suspect]
     Indication: RENAL TRANSPLANT
     Dosage: 750 MG, 2X/DAY
     Route: 048
     Dates: start: 20000608
  2. TACROLIMUS [Concomitant]
     Indication: RENAL TRANSPLANT
     Dosage: 3 MG, 2X/DAY
     Route: 048
     Dates: start: 200011
  3. PREDNISONE [Concomitant]
     Indication: RENAL TRANSPLANT
     Dosage: 5 MG, DAILY
     Route: 048
     Dates: start: 20000608
  4. AZATHIOPRINE [Concomitant]
     Indication: RENAL TRANSPLANT
     Dosage: 200 MG, DAILY
     Route: 048
     Dates: start: 20131217
  5. LABETALOL [Concomitant]
     Indication: HYPERTENSION
     Dosage: 300 MG, 2X/DAY
     Route: 048

REACTIONS (7)
  - Renal failure chronic [Unknown]
  - Hypertension [Unknown]
  - Migraine [Unknown]
  - Urinary tract infection [Unknown]
  - Glucose tolerance impaired [Unknown]
  - Pre-eclampsia [Unknown]
  - Hypersensitivity [Unknown]
